FAERS Safety Report 5369710-6 (Version None)
Quarter: 2007Q2

REPORT INFORMATION
  Report Type: 
  Country: None (occurrence: None)
  Receive Date: 20070621
  Receipt Date: 20070612
  Transmission Date: 20071010
  Serious: Yes (Disabling, Other)
  Sender: FDA-Public Use
  Company Number: DSM-2007-00277

PATIENT
  Age: 75 Year
  Sex: Male

DRUGS (9)
  1. OLMESARTAN (OLMESARTAN MEDOXOMIL) (10 MILLIGRAM, TABLET) (OLMESARTAN M [Suspect]
     Indication: HYPERTENSION
     Dosage: 10 MG (10 MG, 1 IN 1 D), ORAL
     Route: 048
     Dates: start: 20070329, end: 20070409
  2. ADCAL D3(COLECALCIFEROL, CALCIUM CARBONATE) (COLECALCIFEROL, CALCIUM C [Concomitant]
  3. AIROMIR(SALBUTAMOL SULFATE) (SALBUTAMOL SULFATE) [Concomitant]
  4. ALENDRANIC ACID(ALENDRONIC ACID) [Concomitant]
  5. DESLORATADINE (DESLORATADINE) (DESLORATADINE) [Concomitant]
  6. MONTELUKAST SODIUM [Concomitant]
  7. PREDNISOLONE [Concomitant]
  8. SYMBICORT [Concomitant]
  9. UNIPHYL [Concomitant]

REACTIONS (2)
  - ASTHMA [None]
  - CONDITION AGGRAVATED [None]
